FAERS Safety Report 8367405-8 (Version None)
Quarter: 2012Q2

REPORT INFORMATION
  Report Type: 
  Country: None (occurrence: None)
  Receive Date: 20120517
  Receipt Date: 20120511
  Transmission Date: 20120825
  Serious: Yes (Hospitalization, Other)
  Sender: FDA-Public Use
  Company Number: US-MERCK-1102USA02323

PATIENT
  Age: 56 Year
  Sex: Female

DRUGS (7)
  1. FOSAMAX [Suspect]
     Route: 048
     Dates: start: 20080301, end: 20090401
  2. FOSAMAX [Suspect]
     Indication: OSTEOPOROSIS
     Route: 048
     Dates: start: 20020725, end: 20080301
  3. ALENDRONATE SODIUM [Suspect]
     Route: 048
     Dates: start: 20080312, end: 20090201
  4. FOSAMAX [Suspect]
     Indication: OSTEOPENIA
     Route: 048
     Dates: start: 20020725, end: 20080301
  5. FOSAMAX PLUS D [Suspect]
     Route: 048
     Dates: start: 20050922
  6. BUSPAR [Concomitant]
     Indication: ANXIETY
     Route: 065
     Dates: start: 19900101
  7. BUSPAR [Concomitant]
     Indication: DEPRESSION
     Route: 065
     Dates: start: 19900101

REACTIONS (28)
  - HYPERCALCAEMIA [None]
  - NAUSEA [None]
  - HYPERGAMMAGLOBULINAEMIA BENIGN MONOCLONAL [None]
  - HAEMOGLOBIN DECREASED [None]
  - OVARIAN NEOPLASM [None]
  - HYPOKALAEMIA [None]
  - RENAL FAILURE ACUTE [None]
  - LOW TURNOVER OSTEOPATHY [None]
  - VITAMIN D DEFICIENCY [None]
  - CHOLELITHIASIS [None]
  - SEASONAL ALLERGY [None]
  - SCOLIOSIS [None]
  - BILIARY DILATATION [None]
  - CHOLECYSTITIS [None]
  - PLANTAR FASCIAL FIBROMATOSIS [None]
  - HEPATIC CYST [None]
  - OSTEOARTHRITIS [None]
  - FEMUR FRACTURE [None]
  - PARAESTHESIA [None]
  - BACK PAIN [None]
  - FATIGUE [None]
  - OVARIAN CANCER [None]
  - RENAL CYST [None]
  - JOINT EFFUSION [None]
  - HYPERLIPIDAEMIA [None]
  - OVARIAN MASS [None]
  - HYPERCHOLESTEROLAEMIA [None]
  - FRACTURE DELAYED UNION [None]
